FAERS Safety Report 7793174-6 (Version None)
Quarter: 2011Q4

REPORT INFORMATION
  Report Type: 
  Country: None (occurrence: None)
  Receive Date: 20111003
  Receipt Date: 20110922
  Transmission Date: 20120403
  Serious: Yes (Hospitalization)
  Sender: FDA-Public Use
  Company Number: IE-NOVOPROD-327983

PATIENT

DRUGS (1)
  1. NORDITROPIN [Suspect]
     Indication: GROWTH HORMONE DEFICIENCY
     Dosage: 0.024 MG/KG/DAY
     Dates: start: 20090605

REACTIONS (2)
  - ARNOLD-CHIARI MALFORMATION [None]
  - CONDITION AGGRAVATED [None]
